FAERS Safety Report 10341778 (Version 7)
Quarter: 2016Q4

REPORT INFORMATION
  Report Type: Report from Study
  Country: BR (occurrence: BR)
  Receive Date: 20140725
  Receipt Date: 20161226
  Transmission Date: 20170206
  Serious: Yes (Hospitalization, Other)
  Sender: FDA-Public Use
  Company Number: BR-ROCHE-1342565

PATIENT
  Sex: Female
  Weight: 82 kg

DRUGS (11)
  1. GLIFAGE [Concomitant]
     Active Substance: METFORMIN HYDROCHLORIDE
  2. NORMAL SALINE [Suspect]
     Active Substance: SODIUM CHLORIDE
     Indication: PRODUCT USED FOR UNKNOWN INDICATION
     Route: 042
  3. INSULIN [Concomitant]
     Active Substance: INSULIN NOS
     Indication: DIABETES MELLITUS
  4. LIPITOR [Concomitant]
     Active Substance: ATORVASTATIN CALCIUM
     Route: 065
  5. NPH INSULIN [Concomitant]
     Active Substance: INSULIN BEEF
  6. LOSARTAN. [Concomitant]
     Active Substance: LOSARTAN
     Indication: HYPERTENSION
     Route: 065
  7. ACTEMRA [Suspect]
     Active Substance: TOCILIZUMAB
     Indication: RHEUMATOID ARTHRITIS
     Route: 042
     Dates: start: 20111201
  8. ACTEMRA [Suspect]
     Active Substance: TOCILIZUMAB
     Route: 042
     Dates: start: 20151001
  9. RIVOTRIL [Concomitant]
     Active Substance: CLONAZEPAM
     Dosage: HALF TABLET/DAY
     Route: 048
  10. CORTISONE [Suspect]
     Active Substance: CORTISONE\HYDROCORTISONE
     Indication: PRODUCT USED FOR UNKNOWN INDICATION
     Route: 065
  11. BENERVA [Concomitant]
     Active Substance: THIAMINE

REACTIONS (9)
  - Osteoarthritis [Recovering/Resolving]
  - Cataract [Unknown]
  - Rash erythematous [Unknown]
  - Swelling [Unknown]
  - Arthritis [Unknown]
  - Pruritus [Unknown]
  - Catheter site haemorrhage [Unknown]
  - Nosocomial infection [Recovering/Resolving]
  - Musculoskeletal disorder [Recovering/Resolving]
